FAERS Safety Report 4900253-7 (Version None)
Quarter: 2006Q1

REPORT INFORMATION
  Report Type: 
  Country: None (occurrence: None)
  Receive Date: 20060201
  Receipt Date: 20060124
  Transmission Date: 20060701
  Serious: Yes (Other)
  Sender: FDA-Public Use
  Company Number: 2006012182

PATIENT
  Sex: Female
  Weight: 61.2356 kg

DRUGS (3)
  1. ZOLOFT [Suspect]
     Indication: ANXIETY
     Dosage: 50 MG (1 D) 8 YEARS AGO
  2. VITAMINS (VITAMINS) [Concomitant]
  3. MINERALS NOS (MINERALS NOS) [Concomitant]

REACTIONS (14)
  - ABASIA [None]
  - ARTHRALGIA [None]
  - ARTHRITIS [None]
  - BACK DISORDER [None]
  - BACK PAIN [None]
  - BLADDER PROLAPSE [None]
  - BODY HEIGHT DECREASED [None]
  - DEVICE INEFFECTIVE [None]
  - EXOSTOSIS [None]
  - INTERVERTEBRAL DISC PROTRUSION [None]
  - INTESTINAL PROLAPSE [None]
  - KNEE ARTHROPLASTY [None]
  - MUSCULOSKELETAL STIFFNESS [None]
  - PAIN [None]
